FAERS Safety Report 17835993 (Version 1)
Quarter: 2020Q2

REPORT INFORMATION
  Report Type: Spontaneous
  Country: US (occurrence: US)
  Receive Date: 20200528
  Receipt Date: 20200528
  Transmission Date: 20200714
  Serious: Yes (Other)
  Sender: FDA-Public Use
  Company Number: US-PFIZER INC-2019556430

PATIENT
  Age: 74 Year
  Sex: Female

DRUGS (3)
  1. DILANTIN [Suspect]
     Active Substance: PHENYTOIN
     Dosage: 100 MG, 1X/DAY
  2. DILANTIN [Suspect]
     Active Substance: PHENYTOIN
     Dosage: 50 MG
  3. DILANTIN [Suspect]
     Active Substance: PHENYTOIN
     Dosage: 100 AND 50, TAKES TWO OF THEM

REACTIONS (1)
  - Neoplasm malignant [Unknown]
